FAERS Safety Report 16522635 (Version 1)
Quarter: 2019Q3

REPORT INFORMATION
  Report Type: Spontaneous
  Country: HU (occurrence: HU)
  Receive Date: 20190703
  Receipt Date: 20190703
  Transmission Date: 20191004
  Serious: Yes (Other)
  Sender: FDA-Public Use
  Company Number: PHHY2019HU152089

PATIENT
  Age: 60 Year
  Sex: Female

DRUGS (1)
  1. TASIGNA [Suspect]
     Active Substance: NILOTINIB
     Indication: CHRONIC MYELOID LEUKAEMIA
     Dosage: 150 MG, UNK (2X2)
     Route: 065
     Dates: start: 20150706

REACTIONS (6)
  - Varices oesophageal [Unknown]
  - Decreased appetite [Unknown]
  - Splenic vein thrombosis [Unknown]
  - Portal vein cavernous transformation [Unknown]
  - Gastric disorder [Unknown]
  - Portal vein thrombosis [Unknown]

NARRATIVE: CASE EVENT DATE: 201902
